FAERS Safety Report 6534627-8 (Version None)
Quarter: 2010Q1

REPORT INFORMATION
  Report Type: 
  Country: None (occurrence: None)
  Receive Date: 20100112
  Receipt Date: 20100108
  Transmission Date: 20100710
  Serious: Yes (Hospitalization)
  Sender: FDA-Public Use
  Company Number: B0624309A

PATIENT
  Sex: Female

DRUGS (6)
  1. AUGMENTIN [Suspect]
     Dosage: 1G PER DAY
     Route: 048
     Dates: start: 20091012, end: 20091025
  2. OFLOCET [Suspect]
     Dosage: 200MG PER DAY
     Route: 048
     Dates: start: 20091022, end: 20091025
  3. CONTRAMAL [Suspect]
     Indication: DRUG USE FOR UNKNOWN INDICATION
     Dosage: 1UNIT TWICE PER DAY
     Route: 048
     Dates: start: 20091020, end: 20091025
  4. DAFALGAN [Suspect]
     Indication: DRUG USE FOR UNKNOWN INDICATION
     Dosage: 1G TWICE PER DAY
     Route: 048
     Dates: start: 20091020, end: 20091025
  5. TEMESTA [Suspect]
     Indication: DRUG USE FOR UNKNOWN INDICATION
     Dosage: 1MG TWICE PER DAY
     Route: 048
     Dates: start: 20091013, end: 20091026
  6. CIFLOX [Concomitant]
     Route: 065
     Dates: start: 20091012

REACTIONS (2)
  - RASH MACULO-PAPULAR [None]
  - RASH PRURITIC [None]
